FAERS Safety Report 19476683 (Version 1)
Quarter: 2021Q2

REPORT INFORMATION
  Report Type: Spontaneous
  Country: PL (occurrence: PL)
  Receive Date: 20210630
  Receipt Date: 20210630
  Transmission Date: 20210717
  Serious: Yes (Hospitalization, Other)
  Sender: FDA-Public Use
  Company Number: NVSC2021PL145247

PATIENT
  Age: 9 Year
  Sex: Male

DRUGS (9)
  1. HYDROCORTISONE. [Concomitant]
     Active Substance: HYDROCORTISONE
     Indication: STEROID THERAPY
     Dosage: 10 MG/KG, QD
     Route: 065
  2. ONDANSETRON [Suspect]
     Active Substance: ONDANSETRON
     Indication: HENOCH-SCHONLEIN PURPURA
     Dosage: UNK
     Route: 065
  3. AMOXICILLIN, CLAVULANIC ACID [Suspect]
     Active Substance: AMOXICILLIN\CLAVULANIC ACID
     Indication: ANTIBIOTIC THERAPY
  4. ONDANSETRON [Suspect]
     Active Substance: ONDANSETRON
     Indication: ANTIBIOTIC THERAPY
  5. ETAMSYLATE [Suspect]
     Active Substance: ETHAMSYLATE
     Indication: HENOCH-SCHONLEIN PURPURA
     Dosage: UNK
     Route: 065
  6. ETAMSYLATE [Suspect]
     Active Substance: ETHAMSYLATE
     Indication: ANTIBIOTIC THERAPY
  7. IBUPROFEN. [Suspect]
     Active Substance: IBUPROFEN
     Indication: OFF LABEL USE
  8. AMOXICILLIN, CLAVULANIC ACID [Suspect]
     Active Substance: AMOXICILLIN\CLAVULANIC ACID
     Indication: HENOCH-SCHONLEIN PURPURA
     Dosage: UNK
     Route: 065
  9. IBUPROFEN. [Suspect]
     Active Substance: IBUPROFEN
     Indication: HENOCH-SCHONLEIN PURPURA
     Dosage: DOSE NOT REPORTED
     Route: 065

REACTIONS (3)
  - Gastrointestinal inflammation [Unknown]
  - Drug ineffective for unapproved indication [Unknown]
  - Diarrhoea haemorrhagic [Unknown]
